FAERS Safety Report 12865140 (Version 2)
Quarter: 2016Q4

REPORT INFORMATION
  Report Type: Spontaneous
  Country: RU (occurrence: RU)
  Receive Date: 20161020
  Receipt Date: 20161223
  Transmission Date: 20170207
  Serious: Yes (Disabling, Other)
  Sender: FDA-Public Use
  Company Number: RU-009507513-1610RUS009402

PATIENT
  Age: 58 Year
  Sex: Female
  Weight: 118 kg

DRUGS (4)
  1. HALOPERIDOL. [Suspect]
     Active Substance: HALOPERIDOL
  2. DIPROSPAN [Suspect]
     Active Substance: BETAMETHASONE DIPROPIONATE\BETAMETHASONE SODIUM PHOSPHATE
     Indication: ANALGESIC THERAPY
     Dosage: UNK, SEVERAL TIMES
     Route: 014
  3. MAGNEROT [Suspect]
     Active Substance: MAGNESIUM
  4. EGILOK [Suspect]
     Active Substance: METOPROLOL TARTRATE

REACTIONS (6)
  - Osteochondrosis [Recovered/Resolved with Sequelae]
  - Weight increased [Recovered/Resolved with Sequelae]
  - Muscle spasms [Unknown]
  - Blood pressure increased [Unknown]
  - Diarrhoea [Unknown]
  - Breast enlargement [Recovered/Resolved with Sequelae]

NARRATIVE: CASE EVENT DATE: 201509
